FAERS Safety Report 8621006-2 (Version None)
Quarter: 2012Q3

REPORT INFORMATION
  Report Type: 
  Country: None (occurrence: None)
  Receive Date: 20120824
  Receipt Date: 20120817
  Transmission Date: 20120928
  Serious: Yes (Other)
  Sender: FDA-Public Use
  Company Number: TR-ABBOTT-12P-161-0970598-00

PATIENT
  Sex: Female
  Weight: 1.9 kg

DRUGS (1)
  1. CYCLOSPORINE [Suspect]
     Indication: MATERNAL EXPOSURE TIMING UNSPECIFIED
     Route: 064

REACTIONS (5)
  - FOETAL EXPOSURE DURING PREGNANCY [None]
  - INTRAVENTRICULAR HAEMORRHAGE NEONATAL [None]
  - PREMATURE BABY [None]
  - SEPSIS NEONATAL [None]
  - LOW BIRTH WEIGHT BABY [None]
